FAERS Safety Report 16891238 (Version 2)
Quarter: 2019Q4

REPORT INFORMATION
  Report Type: Spontaneous
  Country: ES (occurrence: ES)
  Receive Date: 20191007
  Receipt Date: 20191008
  Transmission Date: 20200122
  Serious: Yes (Other)
  Sender: FDA-Public Use
  Company Number: ES-PFIZER INC-2019423561

PATIENT
  Age: 56 Year
  Sex: Female

DRUGS (4)
  1. DACORTIN [Suspect]
     Active Substance: PREDNISONE
     Indication: RHEUMATOID ARTHRITIS
     Dosage: 3.75 MG, DAILY
     Dates: end: 200607
  2. REMICADE [Suspect]
     Active Substance: INFLIXIMAB
     Indication: RHEUMATOID ARTHRITIS
     Dosage: UNK
     Dates: start: 201010
  3. HUMIRA [Suspect]
     Active Substance: ADALIMUMAB
     Indication: RHEUMATOID ARTHRITIS
     Dosage: UNK
     Dates: start: 200405, end: 200607
  4. METHOTREXATE SODIUM. [Suspect]
     Active Substance: METHOTREXATE SODIUM
     Indication: RHEUMATOID ARTHRITIS
     Dosage: 15 MG, WEEKLY
     Dates: end: 200607

REACTIONS (2)
  - Mucocutaneous leishmaniasis [Not Recovered/Not Resolved]
  - Cutaneous leishmaniasis [Not Recovered/Not Resolved]

NARRATIVE: CASE EVENT DATE: 200407
